FAERS Safety Report 18435843 (Version 3)
Quarter: 2020Q4

REPORT INFORMATION
  Report Type: Report from Study
  Country: US (occurrence: US)
  Receive Date: 20201028
  Receipt Date: 20201111
  Transmission Date: 20210114
  Serious: Yes (Other)
  Sender: FDA-Public Use
  Company Number: US-ROCHE-2701112

PATIENT
  Age: 75 Year
  Sex: Male
  Weight: 110.7 kg

DRUGS (4)
  1. BUPIVACAINE HCL [Concomitant]
     Active Substance: BUPIVACAINE HYDROCHLORIDE
  2. OBINUTUZUMAB. [Suspect]
     Active Substance: OBINUTUZUMAB
     Dosage: LAST DOSE OF OBMITUZUMAB: 28/JUL/2002?LAST OF TREATMENT: 28-JUN-2020 C3D1
     Route: 042
     Dates: start: 20200602
  3. OBINUTUZUMAB. [Suspect]
     Active Substance: OBINUTUZUMAB
     Indication: MANTLE CELL LYMPHOMA
     Route: 042
     Dates: start: 20200819
  4. LIDOCAINE-EPINEPHRINE [Concomitant]
     Active Substance: EPINEPHRINE\LIDOCAINE

REACTIONS (3)
  - Basal cell carcinoma [Recovering/Resolving]
  - Squamous cell carcinoma of skin [Recovering/Resolving]
  - Malignant melanoma [Recovering/Resolving]

NARRATIVE: CASE EVENT DATE: 20201007
